FAERS Safety Report 12822760 (Version 1)
Quarter: 2016Q4

REPORT INFORMATION
  Report Type: Spontaneous
  Country: US (occurrence: US)
  Receive Date: 20161007
  Receipt Date: 20161007
  Transmission Date: 20170207
  Serious: No
  Sender: FDA-Public Use
  Company Number: US-PFIZER INC-2016432514

PATIENT
  Age: 62 Year
  Sex: Female

DRUGS (18)
  1. CALCIUM 600+D3 [Concomitant]
     Active Substance: CALCIUM CARBONATE\VITAMIN D
     Dosage: UNK
  2. FISH OIL [Concomitant]
     Active Substance: FISH OIL
     Dosage: UNK
  3. COLLAGEN [Concomitant]
     Active Substance: COLLAGEN
     Dosage: UNK
  4. GLUCOSAMINE/CHONDROITIN [Concomitant]
     Dosage: UNK
  5. XGEVA [Concomitant]
     Active Substance: DENOSUMAB
     Dosage: UNK
  6. GABAPENTIN. [Concomitant]
     Active Substance: GABAPENTIN
     Dosage: UNK
  7. VALERIAN EXTRACT [Concomitant]
     Active Substance: VALERIAN EXTRACT
     Dosage: UNK
  8. OMNIPRED [Concomitant]
     Active Substance: PREDNISOLONE ACETATE
     Dosage: UNK
  9. BLACK COHOSH [Concomitant]
     Active Substance: BLACK COHOSH
     Dosage: UNK
  10. LYSINE [Concomitant]
     Active Substance: LYSINE
     Dosage: UNK
  11. VIROPTIC [Concomitant]
     Active Substance: TRIFLURIDINE
     Dosage: UNK
  12. FASLODEX [Concomitant]
     Active Substance: FULVESTRANT
     Dosage: UNK
  13. IBRANCE [Suspect]
     Active Substance: PALBOCICLIB
     Indication: MALIGNANT NERVOUS SYSTEM NEOPLASM
     Dosage: 100 MG, CYCLIC (EVERY DAY FOR 21 DAYS THEN REST FOR 7 DAYS)
     Route: 048
     Dates: end: 201608
  14. CHELATED ZINC [Concomitant]
     Dosage: UNK
  15. VITAMIN D [Concomitant]
     Active Substance: CHOLECALCIFEROL
     Dosage: UNK
  16. ACYCLOVIR. [Concomitant]
     Active Substance: ACYCLOVIR
     Dosage: UNK
  17. VITAMIN B COMPLEX [Concomitant]
     Active Substance: CYANOCOBALAMIN\DEXPANTHENOL\NIACINAMIDE\PYRIDOXINE HYDROCHLORIDE\RIBOFLAVIN 5^-PHOSPHATE SODIUM\THIAMINE HYDROCHLORIDE\VITAMIN B COMPLEX
     Dosage: UNK
  18. ACIDOPHILUS/PECTIN [Concomitant]
     Dosage: UNK

REACTIONS (4)
  - Oral pain [Unknown]
  - Product use issue [Recovered/Resolved]
  - Malignant nervous system neoplasm [Unknown]
  - Disease progression [Unknown]
